FAERS Safety Report 5326572-0 (Version None)
Quarter: 2007Q2

REPORT INFORMATION
  Report Type: 
  Country: None (occurrence: None)
  Receive Date: 20070516
  Receipt Date: 20070507
  Transmission Date: 20071010
  Serious: Yes (Death, Hospitalization, Other)
  Sender: FDA-Public Use
  Company Number: US-PFIZER INC-2006130224

PATIENT
  Sex: Female

DRUGS (1)
  1. CELECOXIB [Suspect]
     Indication: ARTHRITIS
     Route: 048
     Dates: start: 19991001, end: 19991215

REACTIONS (2)
  - CEREBROVASCULAR ACCIDENT [None]
  - MYOCARDIAL INFARCTION [None]
